FAERS Safety Report 20869083 (Version 1)
Quarter: 2022Q2

REPORT INFORMATION
  Report Type: Spontaneous
  Country: US (occurrence: None)
  Receive Date: 20220524
  Receipt Date: 20220524
  Transmission Date: 20220721
  Serious: Yes (Other)
  Sender: FDA-Public Use
  Company Number: None

PATIENT
  Age: 78 Year
  Sex: Female
  Weight: 165 kg

DRUGS (13)
  1. REPATHA [Suspect]
     Active Substance: EVOLOCUMAB
     Indication: Blood cholesterol increased
     Dosage: OTHER FREQUENCY : EVERY 14 DAYS;?
     Route: 048
  2. ALENDRONATE [Concomitant]
     Active Substance: ALENDRONATE SODIUM
  3. ATENOLOL [Concomitant]
     Active Substance: ATENOLOL
  4. BUMEX [Concomitant]
     Active Substance: BUMETANIDE
  5. NEXIUM [Concomitant]
     Active Substance: ESOMEPRAZOLE MAGNESIUM
  6. LOSARTAN [Concomitant]
     Active Substance: LOSARTAN
  7. NITROGLYERIN [Concomitant]
  8. SIMVASTATIN [Concomitant]
     Active Substance: SIMVASTATIN
  9. SODIUM CHLORIDE [Concomitant]
     Active Substance: SODIUM CHLORIDE
  10. VITAMIN C [Concomitant]
     Active Substance: ASCORBIC ACID
  11. ASPIRIN [Concomitant]
     Active Substance: ASPIRIN
  12. FISH OIL [Concomitant]
     Active Substance: FISH OIL
  13. FERROUS SULFATE [Concomitant]
     Active Substance: FERROUS SULFATE

REACTIONS (4)
  - Abdominal pain upper [None]
  - Diarrhoea [None]
  - Vomiting [None]
  - Malaise [None]

NARRATIVE: CASE EVENT DATE: 20220425
